FAERS Safety Report 19108661 (Version 2)
Quarter: 2021Q2

REPORT INFORMATION
  Report Type: Spontaneous
  Country: FR (occurrence: FR)
  Receive Date: 20210408
  Receipt Date: 20210423
  Transmission Date: 20210717
  Serious: Yes (Hospitalization)
  Sender: FDA-Public Use
  Company Number: FR-TEVA-2021-FR-1898168

PATIENT
  Age: 11 Year
  Sex: Male

DRUGS (1)
  1. FENTANYL. [Suspect]
     Active Substance: FENTANYL
     Indication: ACCIDENTAL EXPOSURE TO PRODUCT
     Dosage: PATCH
     Route: 062

REACTIONS (6)
  - Cerebral small vessel ischaemic disease [Unknown]
  - Miosis [Unknown]
  - Apnoea [Unknown]
  - Toxicity to various agents [Unknown]
  - Accidental exposure to product [Unknown]
  - Altered state of consciousness [Unknown]
